FAERS Safety Report 8249532-9 (Version None)
Quarter: 2012Q2

REPORT INFORMATION
  Report Type: 
  Country: None (occurrence: None)
  Receive Date: 20120402
  Receipt Date: 20120324
  Transmission Date: 20120825
  Serious: Yes (Other)
  Sender: FDA-Public Use
  Company Number: US-BAYER-201033470NA

PATIENT
  Age: 20 Year
  Sex: Female
  Weight: 78.005 kg

DRUGS (8)
  1. YASMIN [Suspect]
     Indication: CONTRACEPTION
     Dosage: UNK
     Dates: start: 20070601, end: 20080601
  2. YASMIN [Suspect]
     Indication: PREMENSTRUAL SYNDROME
  3. DROSPIRENONE AND ETHINYL ESTRADIOL [Suspect]
     Indication: CONTRACEPTION
     Dosage: UNK
     Route: 065
     Dates: start: 20080701, end: 20091001
  4. DROSPIRENONE AND ETHINYL ESTRADIOL [Suspect]
     Indication: PREMENSTRUAL SYNDROME
  5. VALTREX [Concomitant]
  6. YASMIN [Suspect]
     Indication: ACNE
  7. ZOLOFT [Concomitant]
     Indication: DEPRESSION
     Dosage: UNK
     Dates: start: 20031201, end: 20050701
  8. DROSPIRENONE AND ETHINYL ESTRADIOL [Suspect]
     Indication: ACNE

REACTIONS (10)
  - SCAR [None]
  - CONSTIPATION [None]
  - DYSPEPSIA [None]
  - ANXIETY [None]
  - FLATULENCE [None]
  - CHOLECYSTECTOMY [None]
  - DEPRESSION [None]
  - ABDOMINAL DISTENSION [None]
  - DIARRHOEA [None]
  - CHOLECYSTITIS CHRONIC [None]
